FAERS Safety Report 7132909-2 (Version None)
Quarter: 2010Q4

REPORT INFORMATION
  Report Type: 
  Country: None (occurrence: None)
  Receive Date: 20101202
  Receipt Date: 20101129
  Transmission Date: 20110411
  Serious: No
  Sender: FDA-Public Use
  Company Number: US-PFIZER INC-2010160095

PATIENT
  Age: 19 Year
  Sex: Male

DRUGS (1)
  1. SIROLIMUS [Suspect]
     Dosage: UNK

REACTIONS (2)
  - ACNE [None]
  - DRUG INTERACTION [None]
